FAERS Safety Report 7101185-9 (Version None)
Quarter: 2010Q4

REPORT INFORMATION
  Report Type: 
  Country: None (occurrence: None)
  Receive Date: 20101114
  Receipt Date: 20101105
  Transmission Date: 20110411
  Serious: Yes (Other)
  Sender: FDA-Public Use
  Company Number: PHHY2010US74951

PATIENT
  Sex: Female

DRUGS (3)
  1. GENTEAL (NVO) [Suspect]
  2. GENTEAL MILD LUBRICANT EYE DROPS (NVO) [Suspect]
     Route: 047
  3. GENTEAL LUBRICATING EYE GEL (NVO) [Suspect]

REACTIONS (5)
  - CATARACT [None]
  - CORNEAL TRANSPLANT [None]
  - DRUG INEFFECTIVE [None]
  - DRY EYE [None]
  - GLAUCOMA [None]
